FAERS Safety Report 7562601-1 (Version None)
Quarter: 2011Q2

REPORT INFORMATION
  Report Type: 
  Country: None (occurrence: None)
  Receive Date: 20110622
  Receipt Date: 20110615
  Transmission Date: 20111010
  Serious: Yes (Hospitalization)
  Sender: FDA-Public Use
  Company Number: SE-US-EMD SERONO, INC.-7011109

PATIENT
  Sex: Male

DRUGS (4)
  1. MODIADAL [Concomitant]
  2. REBIF [Suspect]
     Indication: RELAPSING-REMITTING MULTIPLE SCLEROSIS
     Dates: start: 20100609, end: 20100709
  3. AMLODIPINE [Concomitant]
  4. TEGRETOL [Concomitant]

REACTIONS (5)
  - FACIAL NEURALGIA [None]
  - EATING DISORDER [None]
  - MALAISE [None]
  - HEPATIC ENZYME ABNORMAL [None]
  - DECREASED APPETITE [None]
